FAERS Safety Report 4287670-6 (Version None)
Quarter: 2004Q1

REPORT INFORMATION
  Report Type: 
  Country: None (occurrence: None)
  Receive Date: 20040209
  Receipt Date: 20030825
  Transmission Date: 20041129
  Serious: No
  Sender: FDA-Public Use
  Company Number: US-GLAXOSMITHKLINE-A0423389A

PATIENT
  Age: 32 Year
  Sex: Female

DRUGS (5)
  1. PAXIL [Suspect]
     Indication: DEPRESSION
     Dosage: 25MG PER DAY
     Route: 048
  2. SEROQUEL [Concomitant]
  3. ATIVAN [Concomitant]
  4. GABITRIL [Concomitant]
  5. WELLBUTRIN SR [Concomitant]

REACTIONS (3)
  - FATIGUE [None]
  - HEADACHE [None]
  - PARAESTHESIA [None]
